FAERS Safety Report 15749365 (Version 1)
Quarter: 2018Q4

REPORT INFORMATION
  Report Type: Spontaneous
  Country: UM (occurrence: UM)
  Receive Date: 20181220
  Receipt Date: 20181220
  Transmission Date: 20190205
  Serious: Yes (Life-Threatening)
  Sender: FDA-Public Use
  Company Number: None

PATIENT
  Age: 18 Year
  Sex: Female
  Weight: 87.75 kg

DRUGS (5)
  1. MAGNESIUM [Concomitant]
     Active Substance: MAGNESIUM
  2. PROPRANOLOL [Concomitant]
     Active Substance: PROPRANOLOL HYDROCHLORIDE
  3. FLUOXETINE HCL 20MG CAPS [Suspect]
     Active Substance: FLUOXETINE HYDROCHLORIDE
     Indication: ANXIETY
     Dosage: ?          QUANTITY:30 CAPSULE(S);?
     Route: 048
     Dates: start: 20181204, end: 20181206
  4. CLONAZEPAM. [Concomitant]
     Active Substance: CLONAZEPAM
  5. ANXIO CALM [Concomitant]

REACTIONS (2)
  - Adverse event [None]
  - Suicidal ideation [None]

NARRATIVE: CASE EVENT DATE: 20181205
